FAERS Safety Report 13385354 (Version 1)
Quarter: 2017Q1

REPORT INFORMATION
  Report Type: Spontaneous
  Country: US (occurrence: US)
  Receive Date: 20170330
  Receipt Date: 20170330
  Transmission Date: 20170429
  Serious: Yes (Other)
  Sender: FDA-Public Use
  Company Number: None

PATIENT
  Age: 32 Year
  Sex: Male
  Weight: 63 kg

DRUGS (1)
  1. PROPECIA [Suspect]
     Active Substance: FINASTERIDE
     Indication: ALOPECIA
     Dates: start: 20110201, end: 20120201

REACTIONS (3)
  - Frustration tolerance decreased [None]
  - Erectile dysfunction [None]
  - Asthenia [None]

NARRATIVE: CASE EVENT DATE: 20120208
